FAERS Safety Report 9156409 (Version 2)
Quarter: 2013Q3

REPORT INFORMATION
  Report Type: Spontaneous
  Country: GB (occurrence: None)
  Receive Date: 20130204
  Receipt Date: 20130801
  Transmission Date: 20140515
  Serious: Yes (Other)
  Sender: FDA-Public Use
  Company Number: 2013-00136

PATIENT
  Sex: Male

DRUGS (4)
  1. LOSARTAN POTASSIUM [Suspect]
     Indication: AORTIC ANEURYSM
     Dosage: 100 MG (100 MG, 1 IN 1 D), UNKNOWN
  2. ACETYLSALICYLIC ACID [Suspect]
     Indication: PRODUCT USED FOR UNKNOWN INDICATION
     Dosage: UNKNOWN
  3. BENDROFLUAZIDE [Suspect]
     Indication: PRODUCT USED FOR UNKNOWN INDICATION
     Dosage: UNKNOWN (1.25 MG, UNKNOWN), UNKNOWN
  4. BISOPROLOL [Suspect]
     Indication: HEART RATE IRREGULAR
     Dosage: 2.5 MG (2.5 MG, 1 IN 1 D), UNKNOWN

REACTIONS (7)
  - Aneurysm [None]
  - Dyspnoea [None]
  - Blood pressure diastolic increased [None]
  - Cardiac failure [None]
  - Transient ischaemic attack [None]
  - Abdominal distension [None]
  - Drug interaction [None]
